FAERS Safety Report 4975680-2 (Version None)
Quarter: 2006Q2

REPORT INFORMATION
  Report Type: 
  Country: None (occurrence: None)
  Receive Date: 20060411
  Receipt Date: 20060329
  Transmission Date: 20061013
  Serious: Yes (Hospitalization)
  Sender: FDA-Public Use
  Company Number: SUS1-2006-00346

PATIENT
  Age: 15 Year
  Sex: Male

DRUGS (1)
  1. ADDERALL 10 [Suspect]
     Dates: start: 20050901

REACTIONS (2)
  - PSYCHOTIC DISORDER [None]
  - SELF INJURIOUS BEHAVIOUR [None]
